FAERS Safety Report 21043382 (Version 1)
Quarter: 2022Q3

REPORT INFORMATION
  Report Type: Spontaneous
  Country: IN (occurrence: IN)
  Receive Date: 20220705
  Receipt Date: 20220705
  Transmission Date: 20221026
  Serious: Yes (Death)
  Sender: FDA-Public Use
  Company Number: IN-PFIZER INC-2020455930

PATIENT
  Age: 32 Year
  Sex: Female

DRUGS (9)
  1. LORLATINIB [Suspect]
     Active Substance: LORLATINIB
     Indication: Non-small cell lung cancer stage IV
     Dosage: 100 MG, 1X/DAY
     Route: 048
     Dates: start: 20201113
  2. LORLATINIB [Suspect]
     Active Substance: LORLATINIB
     Dosage: 100 MG, 1X/DAY
     Route: 048
     Dates: start: 20201118
  3. LORLATINIB [Suspect]
     Active Substance: LORLATINIB
     Dosage: 100 MG, 1X/DAY
     Route: 048
     Dates: start: 20210304
  4. LORLATINIB [Suspect]
     Active Substance: LORLATINIB
     Dosage: 100 MG, 1X/DAY
     Route: 048
     Dates: start: 20210412
  5. MONTINA L [Concomitant]
     Dosage: 1 DF (1 TABLET HS X 1 MONTH)
  6. ULTRACET [Concomitant]
     Active Substance: ACETAMINOPHEN\TRAMADOL HYDROCHLORIDE
     Dosage: 1 DF, AS NEEDED (1 TABLET SOS)
  7. NEXITO PLUS [Concomitant]
     Dosage: 0.5 DF (0.5 TABLET TO CONTINUUE)
  8. ROZAVEL [Concomitant]
     Dosage: 1 DF
  9. LEVOTHYROXINE [Concomitant]
     Active Substance: LEVOTHYROXINE
     Dosage: 100 MG, 1X/DAY (1-0-0 ) X 2 MONTHS

REACTIONS (6)
  - Death [Fatal]
  - Back pain [Unknown]
  - Pleural effusion [Unknown]
  - Neoplasm progression [Unknown]
  - Obesity [Unknown]
  - Abdominal distension [Unknown]
